FAERS Safety Report 25803644 (Version 1)
Quarter: 2025Q3

REPORT INFORMATION
  Report Type: Spontaneous
  Country: KR (occurrence: KR)
  Receive Date: 20250915
  Receipt Date: 20250915
  Transmission Date: 20251020
  Serious: Yes (Other)
  Sender: GALDERMA
  Company Number: KR-GALDERMA-KR2025017200

PATIENT

DRUGS (1)
  1. EPIDUO [Suspect]
     Active Substance: ADAPALENE\BENZOYL PEROXIDE
     Indication: Acne
     Route: 061
     Dates: start: 20250804, end: 20250906

REACTIONS (2)
  - Erythema multiforme [Unknown]
  - Application site exfoliation [Unknown]

NARRATIVE: CASE EVENT DATE: 20250818
